FAERS Safety Report 9736389 (Version 1)
Quarter: 2013Q4

REPORT INFORMATION
  Report Type: Spontaneous
  Country: DK (occurrence: DK)
  Receive Date: 20131206
  Receipt Date: 20131206
  Transmission Date: 20140711
  Serious: Yes (Death, Life-Threatening, Hospitalization)
  Sender: FDA-Public Use
  Company Number: DK-B.I. PHARMACEUTICALS,INC./RIDGEFIELD-2013-BI-40762DB

PATIENT
  Age: 30 Year
  Sex: Female
  Weight: 40 kg

DRUGS (1)
  1. PRADAXA [Suspect]
     Indication: PULMONARY MALFORMATION
     Dosage: 300 MG
     Route: 048
     Dates: start: 20130108, end: 201305

REACTIONS (5)
  - Cardiac arrest [Fatal]
  - Mucosal haemorrhage [Fatal]
  - Pneumonia aspiration [Fatal]
  - Melaena [Fatal]
  - Prescribed overdose [Fatal]
